FAERS Safety Report 8146706-2 (Version None)
Quarter: 2012Q1

REPORT INFORMATION
  Report Type: 
  Country: None (occurrence: None)
  Receive Date: 20120217
  Receipt Date: 20110929
  Transmission Date: 20120608
  Serious: No
  Sender: FDA-Public Use
  Company Number: US-ABBOTT-11P-163-0858937-00

PATIENT
  Sex: Male
  Weight: 108.96 kg

DRUGS (12)
  1. CARVEDILOL [Concomitant]
     Indication: PRODUCT USED FOR UNKNOWN INDICATION
     Route: 048
  2. SIMCOR [Suspect]
     Indication: CORONARY ARTERY DISEASE
  3. OMEPRAZOLE [Concomitant]
     Indication: PRODUCT USED FOR UNKNOWN INDICATION
     Route: 048
  4. METFORMIN HCL [Concomitant]
     Indication: PRODUCT USED FOR UNKNOWN INDICATION
     Route: 048
  5. SIMCOR [Suspect]
     Indication: MYOCARDIAL INFARCTION
     Dosage: 500/20MG AT BEDTIME
     Route: 048
     Dates: start: 20110201
  6. EFFIENT [Concomitant]
     Indication: PRODUCT USED FOR UNKNOWN INDICATION
     Route: 048
  7. ASPIRIN [Concomitant]
     Indication: PRODUCT USED FOR UNKNOWN INDICATION
     Route: 048
  8. VIT B6 [Concomitant]
     Indication: PRODUCT USED FOR UNKNOWN INDICATION
     Route: 048
  9. METFORMIN HCL [Concomitant]
     Route: 048
  10. AVEPRO [Concomitant]
     Indication: PRODUCT USED FOR UNKNOWN INDICATION
     Route: 048
  11. GLUCOSAMINE CHONDROITIN [Concomitant]
     Indication: ARTHRALGIA
     Route: 048
  12. RAPAFLOW [Concomitant]
     Indication: PRODUCT USED FOR UNKNOWN INDICATION
     Route: 048

REACTIONS (9)
  - FLUSHING [None]
  - BLOOD GLUCOSE INCREASED [None]
  - ERYTHEMA [None]
  - WEIGHT INCREASED [None]
  - INCREASED APPETITE [None]
  - FEELING HOT [None]
  - PRURITUS [None]
  - ARTHRALGIA [None]
  - PARAESTHESIA [None]
